FAERS Safety Report 21027683 (Version 1)
Quarter: 2022Q2

REPORT INFORMATION
  Report Type: Other
  Country: CA (occurrence: CA)
  Receive Date: 20220630
  Receipt Date: 20220630
  Transmission Date: 20220721
  Serious: Yes (Hospitalization, Other)
  Sender: FDA-Public Use
  Company Number: CA-CELLTRION INC.-2022CA010321

PATIENT

DRUGS (4)
  1. TRUXIMA [Suspect]
     Active Substance: RITUXIMAB-ABBS
     Indication: Rheumatoid arthritis
     Dosage: UNK
     Route: 042
  2. TRUXIMA [Suspect]
     Active Substance: RITUXIMAB-ABBS
     Dosage: 1000.0 MILLIGRAM
     Route: 042
  3. TRUXIMA [Suspect]
     Active Substance: RITUXIMAB-ABBS
     Dosage: 1000.0 MILLIGRAM
     Route: 042
  4. TRUXIMA [Suspect]
     Active Substance: RITUXIMAB-ABBS
     Dosage: 1000.0 MILLIGRAM
     Route: 042

REACTIONS (9)
  - Dental operation [Unknown]
  - Hip arthroplasty [Unknown]
  - Hospitalisation [Unknown]
  - Ill-defined disorder [Unknown]
  - Poor venous access [Unknown]
  - Asthenia [Unknown]
  - Blood pressure increased [Unknown]
  - Diarrhoea [Unknown]
  - Hypertension [Unknown]
